FAERS Safety Report 6814643-9 (Version None)
Quarter: 2010Q3

REPORT INFORMATION
  Report Type: 
  Country: None (occurrence: None)
  Receive Date: 20100702
  Receipt Date: 20100623
  Transmission Date: 20110219
  Serious: Yes (Hospitalization)
  Sender: FDA-Public Use
  Company Number: DE-PFIZER INC-2010078924

PATIENT
  Age: 69 Year
  Sex: Male
  Weight: 87 kg

DRUGS (4)
  1. BLINDED *NO SUBJECT DRUG [Suspect]
     Indication: PROSTATE CANCER
     Dosage: 37.5 MG, 1X/DAY
     Route: 048
     Dates: start: 20100604, end: 20100618
  2. BLINDED *PLACEBO [Suspect]
     Indication: PROSTATE CANCER
     Dosage: 37.5 MG, 1X/DAY
     Route: 048
     Dates: start: 20100604, end: 20100618
  3. SUNITINIB MALATE [Suspect]
     Indication: PROSTATE CANCER
     Dosage: 37.5 MG, 1X/DAY
     Route: 048
     Dates: start: 20100604, end: 20100618
  4. *PREDNISONE [Suspect]
     Indication: PROSTATE CANCER
     Dosage: 10 MG, 2X/DAY
     Route: 048
     Dates: start: 20100604, end: 20100604

REACTIONS (2)
  - ASTHENIA [None]
  - PERFORMANCE STATUS DECREASED [None]
